FAERS Safety Report 10040754 (Version 1)
Quarter: 2014Q1

REPORT INFORMATION
  Report Type: Spontaneous
  Country: US (occurrence: US)
  Receive Date: 20140327
  Receipt Date: 20140327
  Transmission Date: 20141002
  Serious: No
  Sender: FDA-Public Use
  Company Number: US-B.I. PHARMACEUTICALS,INC./RIDGEFIELD-2014-BI-12715BP

PATIENT
  Age: 32 Year
  Sex: Male
  Weight: 62 kg

DRUGS (5)
  1. ZANTAC 150 (RANITIDINE HYDROCHLORIDE) [Suspect]
     Indication: GASTROOESOPHAGEAL REFLUX DISEASE
     Route: 048
     Dates: start: 20140319
  2. HYDROXYZINE [Concomitant]
     Indication: ANXIETY
     Dosage: 100 MG
     Route: 050
  3. BUPROPION XL [Concomitant]
     Indication: DEPRESSION
     Dosage: 300 MG
     Route: 048
  4. BUPROPION XL [Concomitant]
     Dosage: 150 MG
     Route: 048
  5. DIVAKPROEX SODIUM [Concomitant]
     Indication: MOOD SWINGS
     Dosage: 500 MG
     Route: 048

REACTIONS (4)
  - Ear congestion [Not Recovered/Not Resolved]
  - Ear pain [Not Recovered/Not Resolved]
  - Tinnitus [Not Recovered/Not Resolved]
  - Off label use [Not Recovered/Not Resolved]
